FAERS Safety Report 4640955-3 (Version None)
Quarter: 2005Q2

REPORT INFORMATION
  Report Type: 
  Country: None (occurrence: None)
  Receive Date: 20050420
  Receipt Date: 20030605
  Transmission Date: 20051028
  Serious: Yes (Hospitalization, Other)
  Sender: FDA-Public Use
  Company Number: US-MERCK-0306USA00779

PATIENT
  Age: 62 Year
  Sex: Male
  Weight: 96 kg

DRUGS (12)
  1. VIOXX [Suspect]
     Indication: NECK PAIN
     Route: 048
     Dates: end: 20000522
  2. VIOXX [Suspect]
     Route: 048
     Dates: start: 20000609, end: 20010801
  3. VIOXX [Suspect]
     Route: 048
     Dates: start: 20000523, end: 20000606
  4. VIOXX [Suspect]
     Indication: BACK PAIN
     Route: 048
     Dates: end: 20000522
  5. VIOXX [Suspect]
     Route: 048
     Dates: start: 20000609, end: 20010801
  6. VIOXX [Suspect]
     Route: 048
     Dates: start: 20000523, end: 20000606
  7. PLAVIX [Concomitant]
     Route: 065
  8. PRILOSEC [Concomitant]
     Route: 065
     Dates: end: 20011126
  9. LIPITOR [Concomitant]
     Route: 065
     Dates: end: 20010801
  10. ZOCOR [Concomitant]
     Route: 048
     Dates: start: 20010801, end: 20011129
  11. ZOCOR [Concomitant]
     Route: 048
     Dates: start: 20011129
  12. ASPIRIN [Concomitant]
     Route: 065

REACTIONS (24)
  - ADVERSE EVENT [None]
  - ANGINA PECTORIS [None]
  - AORTIC DISORDER [None]
  - BLOOD PRESSURE INCREASED [None]
  - CHEST DISCOMFORT [None]
  - CHRONIC OBSTRUCTIVE PULMONARY DISEASE [None]
  - COLONIC POLYP [None]
  - CONVULSION [None]
  - CORONARY ARTERY STENOSIS [None]
  - DIAPHRAGMATIC DISORDER [None]
  - DIAPHRAGMATIC HERNIA [None]
  - DIVERTICULUM [None]
  - FOOT FRACTURE [None]
  - GASTROOESOPHAGEAL REFLUX DISEASE [None]
  - HEADACHE [None]
  - HYPERCHOLESTEROLAEMIA [None]
  - HYPOTENSION [None]
  - INTERVERTEBRAL DISC DEGENERATION [None]
  - MYOCARDIAL INFARCTION [None]
  - MYOCARDIAL ISCHAEMIA [None]
  - OSTEOPOROSIS [None]
  - POST PROCEDURAL HAEMATOMA [None]
  - SPINAL OSTEOARTHRITIS [None]
  - TREATMENT NONCOMPLIANCE [None]
